FAERS Safety Report 12747728 (Version 1)
Quarter: 2016Q3

REPORT INFORMATION
  Report Type: Spontaneous
  Country: US (occurrence: US)
  Receive Date: 20160915
  Receipt Date: 20160915
  Transmission Date: 20161109
  Serious: No
  Sender: FDA-Public Use
  Company Number: US-JAZZ-2016-US-009941

PATIENT
  Sex: Female
  Weight: 99.77 kg

DRUGS (39)
  1. XYREM [Suspect]
     Active Substance: SODIUM OXYBATE
     Indication: NARCOLEPSY
     Dosage: 2.25 G, BID
     Route: 048
     Dates: start: 201207, end: 201208
  2. XYREM [Suspect]
     Active Substance: SODIUM OXYBATE
     Indication: CATAPLEXY
     Dosage: DOSE ADJUSTMENTS
     Route: 048
     Dates: start: 201208, end: 201509
  3. BENZONATATE. [Concomitant]
     Active Substance: BENZONATATE
  4. ABILIFY [Concomitant]
     Active Substance: ARIPIPRAZOLE
  5. VITAMINS NOS [Concomitant]
     Active Substance: VITAMINS
  6. NOVOLOG [Concomitant]
     Active Substance: INSULIN ASPART
  7. NABUMETONE. [Concomitant]
     Active Substance: NABUMETONE
  8. CALCIUM MAGNESIUM [Concomitant]
     Active Substance: CALCIUM\MAGNESIUM
  9. CLONIDINE HCL [Concomitant]
     Active Substance: CLONIDINE HYDROCHLORIDE
  10. IBUPROFEN. [Concomitant]
     Active Substance: IBUPROFEN
  11. KLONOPIN [Concomitant]
     Active Substance: CLONAZEPAM
  12. LUVOX [Concomitant]
     Active Substance: FLUVOXAMINE MALEATE
  13. TYLENOL EXTRA STRENGTH [Concomitant]
     Active Substance: ACETAMINOPHEN
  14. XYREM [Suspect]
     Active Substance: SODIUM OXYBATE
     Dosage: 4 G, FIRST DOSE
     Route: 048
     Dates: start: 201509, end: 2016
  15. NEUPRO [Concomitant]
     Active Substance: ROTIGOTINE
  16. PROAIR HFA [Concomitant]
     Active Substance: ALBUTEROL SULFATE
  17. HYDROCHLOROTHIAZIDE. [Concomitant]
     Active Substance: HYDROCHLOROTHIAZIDE
  18. MULTIVITAMINS [Concomitant]
     Active Substance: VITAMINS
  19. LEVOTHYROXINE SODIUM. [Concomitant]
     Active Substance: LEVOTHYROXINE SODIUM
  20. ZYRTEC [Concomitant]
     Active Substance: CETIRIZINE HYDROCHLORIDE
  21. XYREM [Suspect]
     Active Substance: SODIUM OXYBATE
     Dosage: 5 G, SECOND DOSE
     Route: 048
     Dates: start: 201509, end: 2016
  22. XYREM [Suspect]
     Active Substance: SODIUM OXYBATE
     Dosage: 3 G, BID
     Route: 048
     Dates: start: 2016, end: 2016
  23. LISINOPRIL. [Concomitant]
     Active Substance: LISINOPRIL
  24. FOLPLEX [Concomitant]
     Active Substance: CHOLECALCIFEROL\CYANOCOBALAMIN CO-57\FOLIC ACID\PYRIDOXINE HYDROCHLORIDE
  25. WELLBUTRIN SR [Concomitant]
     Active Substance: BUPROPION HYDROCHLORIDE
  26. ASPIRIN. [Concomitant]
     Active Substance: ASPIRIN
  27. DICLOFENAC SODIUM. [Concomitant]
     Active Substance: DICLOFENAC SODIUM
  28. PRILOSEC [Concomitant]
     Active Substance: OMEPRAZOLE MAGNESIUM
  29. TRAMADOL HCL [Concomitant]
     Active Substance: TRAMADOL HYDROCHLORIDE
  30. ZITHROMAX [Concomitant]
     Active Substance: AZITHROMYCIN DIHYDRATE
  31. BENTYL [Concomitant]
     Active Substance: DICYCLOMINE HYDROCHLORIDE
  32. NEURONTIN [Concomitant]
     Active Substance: GABAPENTIN
  33. METHOCARBAMOL. [Concomitant]
     Active Substance: METHOCARBAMOL
  34. STRATTERA [Concomitant]
     Active Substance: ATOMOXETINE HYDROCHLORIDE
  35. TYLENOL WITH CODEINE [Concomitant]
     Active Substance: ACETAMINOPHEN\CODEINE PHOSPHATE
  36. VITAMIN D [Concomitant]
     Active Substance: CHOLECALCIFEROL
  37. TOPAMAX [Concomitant]
     Active Substance: TOPIRAMATE
  38. PRENATAL VITAMINS [Concomitant]
     Active Substance: VITAMINS
  39. RITALIN [Concomitant]
     Active Substance: METHYLPHENIDATE HYDROCHLORIDE

REACTIONS (1)
  - Diarrhoea [Recovered/Resolved]

NARRATIVE: CASE EVENT DATE: 2014
